FAERS Safety Report 19077320 (Version 2)
Quarter: 2021Q2

REPORT INFORMATION
  Report Type: Spontaneous
  Country: JP (occurrence: JP)
  Receive Date: 20210331
  Receipt Date: 20210504
  Transmission Date: 20210717
  Serious: Yes (Other)
  Sender: FDA-Public Use
  Company Number: JP-AMGEN-JPNSP2021047562

PATIENT
  Age: 63 Year
  Sex: Female

DRUGS (3)
  1. IRINOTECAN HYDROCHLORIDE. [Suspect]
     Active Substance: IRINOTECAN HYDROCHLORIDE
     Indication: PRODUCT USED FOR UNKNOWN INDICATION
     Dosage: UNK
     Route: 065
  2. VECTIBIX [Suspect]
     Active Substance: PANITUMUMAB
     Indication: COLORECTAL CANCER METASTATIC
     Dosage: UNK
     Route: 042
     Dates: start: 202009, end: 20210409
  3. EDIROL [Concomitant]
     Active Substance: ELDECALCITOL
     Dosage: UNK
     Route: 065

REACTIONS (5)
  - Disease progression [Unknown]
  - Disease progression [Unknown]
  - Colorectal cancer metastatic [Unknown]
  - Osteoporosis [Unknown]
  - Osteoporotic fracture [Not Recovered/Not Resolved]

NARRATIVE: CASE EVENT DATE: 20210409
